FAERS Safety Report 5959199-8 (Version None)
Quarter: 2008Q4

REPORT INFORMATION
  Report Type: 
  Country: None (occurrence: None)
  Receive Date: 20081120
  Receipt Date: 20080609
  Transmission Date: 20090506
  Serious: No
  Sender: FDA-Public Use
  Company Number: A0732964A

PATIENT
  Sex: Female

DRUGS (2)
  1. WELLBUTRIN SR [Suspect]
     Indication: DRUG USE FOR UNKNOWN INDICATION
     Route: 048
  2. WELLBUTRIN XL [Suspect]
     Indication: DRUG USE FOR UNKNOWN INDICATION
     Route: 048

REACTIONS (2)
  - FEELING JITTERY [None]
  - OVERDOSE [None]
